FAERS Safety Report 14351677 (Version 1)
Quarter: 2018Q1

REPORT INFORMATION
  Report Type: Spontaneous
  Country: US (occurrence: US)
  Receive Date: 20180104
  Receipt Date: 20180104
  Transmission Date: 20180509
  Serious: No
  Sender: FDA-Public Use
  Company Number: US-ASTRAZENECA-2017SF29391

PATIENT
  Sex: Female

DRUGS (3)
  1. PULMICORT FLEXHALER [Suspect]
     Active Substance: BUDESONIDE
     Indication: NASOPHARYNGITIS
     Route: 055
  2. QUVAR [Concomitant]
     Route: 065
  3. ALBUTEROL. [Concomitant]
     Active Substance: ALBUTEROL
     Route: 065

REACTIONS (7)
  - Off label use [Unknown]
  - Wrong technique in device usage process [Unknown]
  - Product use in unapproved indication [Not Recovered/Not Resolved]
  - Asthma [Unknown]
  - Device malfunction [Not Recovered/Not Resolved]
  - Nasopharyngitis [Not Recovered/Not Resolved]
  - Chest discomfort [Not Recovered/Not Resolved]

NARRATIVE: CASE EVENT DATE: 2015
